FAERS Safety Report 13667005 (Version 1)
Quarter: 2017Q2

REPORT INFORMATION
  Report Type: Spontaneous
  Country: US (occurrence: US)
  Receive Date: 20170619
  Receipt Date: 20170619
  Transmission Date: 20170830
  Serious: Yes (Other)
  Sender: FDA-Public Use
  Company Number: US-ROCHE-1327767

PATIENT
  Sex: Female

DRUGS (15)
  1. XELODA [Suspect]
     Active Substance: CAPECITABINE
     Indication: PRODUCT USED FOR UNKNOWN INDICATION
     Dosage: 3 IN MORNING, 3 IN EVENING - 14 DAYS ON, 7 OFF
     Route: 048
     Dates: start: 20130606
  2. DILTIAZEM. [Concomitant]
     Active Substance: DILTIAZEM
  3. LIPITOR [Concomitant]
     Active Substance: ATORVASTATIN CALCIUM
  4. LORAZEPAM. [Concomitant]
     Active Substance: LORAZEPAM
  5. DORZOLAMIDE [Concomitant]
     Active Substance: DORZOLAMIDE
  6. LANTUS [Concomitant]
     Active Substance: INSULIN GLARGINE
  7. LOSARTAN. [Concomitant]
     Active Substance: LOSARTAN
  8. ALENDRONATE [Concomitant]
     Active Substance: ALENDRONATE SODIUM
  9. LATANOPROST. [Concomitant]
     Active Substance: LATANOPROST
  10. ASPIRIN. [Concomitant]
     Active Substance: ASPIRIN
  11. HUMALOG [Concomitant]
     Active Substance: INSULIN LISPRO
  12. DEXILANT [Concomitant]
     Active Substance: DEXLANSOPRAZOLE
  13. VITAMIN D3 [Concomitant]
     Active Substance: CHOLECALCIFEROL
  14. ZOLPIDEM [Concomitant]
     Active Substance: ZOLPIDEM\ZOLPIDEM TARTRATE
  15. HYDROCHLOROTHIAZIDE. [Concomitant]
     Active Substance: HYDROCHLOROTHIAZIDE

REACTIONS (6)
  - Pain in extremity [Unknown]
  - Constipation [Unknown]
  - Headache [Unknown]
  - Abdominal pain upper [Unknown]
  - Nausea [Unknown]
  - Hypoaesthesia [Unknown]
